FAERS Safety Report 13738530 (Version 1)
Quarter: 2017Q3

REPORT INFORMATION
  Report Type: Spontaneous
  Country: US (occurrence: US)
  Receive Date: 20170710
  Receipt Date: 20170710
  Transmission Date: 20171127
  Serious: Yes (Other)
  Sender: FDA-Public Use
  Company Number: US-SAOL THERAPEUTICS-2017SAO00138

PATIENT
  Age: 70 Year
  Sex: Male

DRUGS (3)
  1. LIORESAL [Suspect]
     Active Substance: BACLOFEN
     Indication: PARALYSIS
     Dosage: 60 ?G, \DAY
     Route: 037
     Dates: start: 20140922, end: 20141008
  2. LIORESAL [Suspect]
     Active Substance: BACLOFEN
     Dosage: 77 ?G, \DAY
     Route: 037
     Dates: start: 2014
  3. LIORESAL [Suspect]
     Active Substance: BACLOFEN
     Indication: SPINAL CORD INJURY
     Dosage: 70.1 ?G, \DAY
     Route: 037
     Dates: start: 20141008

REACTIONS (2)
  - Muscle spasticity [Unknown]
  - Device failure [Recovered/Resolved]

NARRATIVE: CASE EVENT DATE: 2014
